FAERS Safety Report 6631683-3 (Version None)
Quarter: 2010Q1

REPORT INFORMATION
  Report Type: 
  Country: None (occurrence: None)
  Receive Date: 20100312
  Receipt Date: 20100301
  Transmission Date: 20100710
  Serious: Yes (Death)
  Sender: FDA-Public Use
  Company Number: JP-PFIZER INC-2010022542

PATIENT
  Age: 70 Year
  Sex: Male

DRUGS (10)
  1. RIFABUTIN [Suspect]
     Indication: MYCOBACTERIUM AVIUM COMPLEX INFECTION
     Dosage: 150 MG, 1X/DAY
     Route: 048
     Dates: start: 20090316, end: 20090621
  2. GASTER [Concomitant]
     Route: 048
     Dates: end: 20090621
  3. KLARICID [Concomitant]
     Route: 048
     Dates: end: 20090621
  4. TIENAM [Concomitant]
     Dosage: UNK
     Route: 042
     Dates: start: 20090607, end: 20090608
  5. ETHAMBUTOL [Concomitant]
     Route: 048
     Dates: end: 20090621
  6. GARENOXACIN MESILATE [Concomitant]
     Route: 048
     Dates: end: 20090621
  7. ZYVOX [Concomitant]
     Dosage: UNK
     Route: 042
     Dates: start: 20090528, end: 20090610
  8. MIDAZOLAM [Concomitant]
     Dosage: UNK
     Route: 042
     Dates: start: 20090526, end: 20090621
  9. VITAMINS W/AMINO ACIDS [Concomitant]
     Dosage: UNK
     Route: 042
     Dates: start: 20090606, end: 20090621
  10. RIMACTANE [Concomitant]
     Route: 048

REACTIONS (1)
  - RESPIRATORY FAILURE [None]
